FAERS Safety Report 10183833 (Version 1)
Quarter: 2014Q2

REPORT INFORMATION
  Report Type: Spontaneous
  Country: FR (occurrence: FR)
  Receive Date: 20140520
  Receipt Date: 20140520
  Transmission Date: 20141212
  Serious: Yes (Hospitalization, Other)
  Sender: FDA-Public Use
  Company Number: FR-ACTAVIS-2014-10392

PATIENT
  Age: 81 Year
  Sex: Female

DRUGS (1)
  1. SOTALOL (UNKNOWN) [Suspect]
     Indication: ATRIAL TACHYCARDIA
     Dosage: 80 MG, BID
     Route: 065

REACTIONS (4)
  - Torsade de pointes [Recovered/Resolved]
  - Electrocardiogram QT prolonged [Recovered/Resolved]
  - Bradycardia [Recovered/Resolved]
  - Electrocardiogram U-wave abnormality [Recovered/Resolved]
